FAERS Safety Report 18792529 (Version 1)
Quarter: 2021Q1

REPORT INFORMATION
  Report Type: Spontaneous
  Country: DE (occurrence: DE)
  Receive Date: 20210127
  Receipt Date: 20210127
  Transmission Date: 20210419
  Serious: Yes (Hospitalization)
  Sender: FDA-Public Use
  Company Number: DE-SUN PHARMACEUTICAL INDUSTRIES LTD-2021RR-277768

PATIENT
  Sex: Male

DRUGS (11)
  1. 5?FU [Concomitant]
     Active Substance: FLUOROURACIL
     Indication: PRODUCT USED FOR UNKNOWN INDICATION
     Dosage: BOLUS + PUMPE ()
     Route: 065
  2. TAVEGIL [Concomitant]
     Active Substance: CLEMASTINE FUMARATE
     Indication: PREMEDICATION
     Dosage: 1 AMPULLE TAVEGIL 30 MINUTEN VORHER
     Route: 042
     Dates: start: 20201029
  3. OXALIPLATIN SUN 5 MG/ML KONZENTRAT ZUR HERSTELLUNG EINER [Suspect]
     Active Substance: OXALIPLATIN
     Indication: PRODUCT USED FOR UNKNOWN INDICATION
     Dosage: INDIVIDUELL ALLE 2 WOCHEN/TEILWEISE UBER MONATEIN L?SUNGSMITTEL 50 ML GLUCOSE 5% ?BER 120 MIN. ()
     Route: 042
     Dates: start: 20201012
  4. GRANISETRON [Concomitant]
     Active Substance: GRANISETRON
     Dosage: 30 MINUTEN VORHER ()
     Route: 042
     Dates: start: 20201029
  5. OXALIPLATIN SUN 5 MG/ML KONZENTRAT ZUR HERSTELLUNG EINER [Suspect]
     Active Substance: OXALIPLATIN
     Dosage: INDIVIDUELL ALLE 2 WOCHEN/TEILWEISE UBER MONATE ()
     Route: 042
     Dates: start: 20201029
  6. FORTECORTIN [Concomitant]
     Active Substance: DEXAMETHASONE
     Indication: PREMEDICATION
     Dosage: 30 MINUTEN VORHER ()
     Route: 042
     Dates: start: 20201029
  7. FORTECORTIN [Concomitant]
     Active Substance: DEXAMETHASONE
     Dosage: 30 MINUTEN VORHER ()
     Route: 042
     Dates: start: 20201012
  8. GRANISETRON [Concomitant]
     Active Substance: GRANISETRON
     Indication: PREMEDICATION
     Dosage: 30 MINUTEN VORHER ()
     Route: 042
     Dates: start: 20201012
  9. SOLU?DECORTIN [Concomitant]
     Active Substance: PREDNISOLONE SODIUM SUCCINATE
     Indication: PREMEDICATION
     Dosage: 30 MINUTEN VORHER
     Route: 042
     Dates: start: 20201012
  10. SOLU?DECORTIN [Concomitant]
     Active Substance: PREDNISOLONE SODIUM SUCCINATE
     Dosage: 30 MINUTEN VORHER
     Route: 042
     Dates: start: 20201029
  11. TAVEGIL [Concomitant]
     Active Substance: CLEMASTINE FUMARATE
     Dosage: 1 AMPULLE TAVEGIL 30 MINUTEN VORHER
     Route: 042
     Dates: start: 20201012

REACTIONS (6)
  - Pruritus [Recovered/Resolved]
  - Rash erythematous [Recovered/Resolved]
  - Nausea [Recovered/Resolved]
  - Erythema [Recovered/Resolved]
  - Product quality issue [Unknown]
  - Pruritus [Recovered/Resolved]

NARRATIVE: CASE EVENT DATE: 20201012
